FAERS Safety Report 5238537-8 (Version None)
Quarter: 2007Q1

REPORT INFORMATION
  Report Type: 
  Country: None (occurrence: None)
  Receive Date: 20070215
  Receipt Date: 20070206
  Transmission Date: 20070707
  Serious: Yes (Other)
  Sender: FDA-Public Use
  Company Number: NL-GLAXOSMITHKLINE-B0458038A

PATIENT
  Sex: Male

DRUGS (1)
  1. FLIXOTIDE [Suspect]
     Indication: COUGH
     Dosage: 125MCG PER DAY
     Route: 055
     Dates: start: 20030801

REACTIONS (1)
  - TOOTH HYPOPLASIA [None]
